FAERS Safety Report 11391911 (Version 8)
Quarter: 2017Q4

REPORT INFORMATION
  Report Type: Spontaneous
  Country: US (occurrence: US)
  Receive Date: 20150818
  Receipt Date: 20171012
  Transmission Date: 20180320
  Serious: No
  Sender: FDA-Public Use
  Company Number: US-PFIZER INC-2015270854

PATIENT
  Age: 11 Year
  Sex: Male
  Weight: 51 kg

DRUGS (4)
  1. GENOTROPIN [Suspect]
     Active Substance: SOMATROPIN
     Dosage: 4.4 MG, 1X/DAY, (INJECTION ONCE DAILY)
     Route: 058
     Dates: start: 201308
  2. GENOTROPIN [Suspect]
     Active Substance: SOMATROPIN
     Indication: HYPOPITUITARISM
     Dosage: 2.6 MG, 1X/DAY
     Route: 058
     Dates: start: 20131010
  3. GENOTROPIN [Suspect]
     Active Substance: SOMATROPIN
     Indication: DWARFISM
     Dosage: 2.4 MG, DAILY
     Route: 058
     Dates: start: 20130731
  4. GENOTROPIN [Suspect]
     Active Substance: SOMATROPIN
     Indication: GROWTH HORMONE DEFICIENCY
     Dosage: 4 MG, DAILY
     Route: 058
     Dates: start: 201310

REACTIONS (4)
  - Anxiety [Unknown]
  - Anger [Unknown]
  - Attention deficit/hyperactivity disorder [Unknown]
  - Emotional disorder [Unknown]
